FAERS Safety Report 5816489-7 (Version None)
Quarter: 2008Q3

REPORT INFORMATION
  Report Type: 
  Country: None (occurrence: None)
  Receive Date: 20080721
  Receipt Date: 20080711
  Transmission Date: 20090109
  Serious: Yes (Congenital Anomaly)
  Sender: FDA-Public Use
  Company Number: CA-MERCK-0807CAN00063

PATIENT

DRUGS (1)
  1. MAXALT [Suspect]
     Route: 064

REACTIONS (1)
  - FOETAL MALFORMATION [None]
